FAERS Safety Report 5205255-1 (Version None)
Quarter: 2007Q1

REPORT INFORMATION
  Report Type: 
  Country: None (occurrence: None)
  Receive Date: 20070110
  Receipt Date: 20070103
  Transmission Date: 20070707
  Serious: Yes (Other)
  Sender: FDA-Public Use
  Company Number: US-PFIZER INC-2007001700

PATIENT
  Sex: Female
  Weight: 59 kg

DRUGS (2)
  1. NORVASC [Suspect]
     Indication: HYPERTENSION
     Route: 048
  2. DIOVAN [Concomitant]

REACTIONS (2)
  - BLOOD CREATININE INCREASED [None]
  - CONDITION AGGRAVATED [None]
